FAERS Safety Report 16681432 (Version 3)
Quarter: 2019Q3

REPORT INFORMATION
  Report Type: Spontaneous
  Country: US (occurrence: US)
  Receive Date: 20190808
  Receipt Date: 20190816
  Transmission Date: 20191004
  Serious: Yes (Hospitalization)
  Sender: FDA-Public Use
  Company Number: US-UNITED THERAPEUTICS-UNT-2019-013129

PATIENT
  Age: 65 Year
  Sex: Female

DRUGS (3)
  1. TYVASO [Suspect]
     Active Substance: TREPROSTINIL
     Indication: PULMONARY ARTERIAL HYPERTENSION
     Dosage: 18 ?G, QID
     Dates: start: 20190730
  2. TYVASO [Suspect]
     Active Substance: TREPROSTINIL
     Dosage: 24 ?G, QID
  3. UPTRAVI [Suspect]
     Active Substance: SELEXIPAG
     Indication: PULMONARY ARTERIAL HYPERTENSION
     Dosage: 800 ?G, BID
     Route: 065

REACTIONS (7)
  - Bendopnoea [Unknown]
  - Blood glucose decreased [Unknown]
  - Fatigue [Unknown]
  - Fall [Recovered/Resolved]
  - Dyspnoea exertional [Unknown]
  - Syncope [Unknown]
  - Asthenia [Unknown]

NARRATIVE: CASE EVENT DATE: 2019
